FAERS Safety Report 16874513 (Version 1)
Quarter: 2019Q4

REPORT INFORMATION
  Report Type: Report from Study
  Country: US (occurrence: US)
  Receive Date: 20191001
  Receipt Date: 20191001
  Transmission Date: 20200122
  Serious: No
  Sender: FDA-Public Use
  Company Number: US-INCYTE CORPORATION-2019IN009105

PATIENT

DRUGS (22)
  1. HYDROXYUREA. [Concomitant]
     Active Substance: HYDROXYUREA
     Dosage: 500 MILLIGRAM, 4X A WEEK
     Route: 065
     Dates: start: 20110117, end: 20160920
  2. HYDROXYUREA. [Concomitant]
     Active Substance: HYDROXYUREA
     Dosage: 500 MILLIGRAM, QD
     Route: 065
     Dates: start: 20161021
  3. HYDROXYUREA. [Concomitant]
     Active Substance: HYDROXYUREA
     Dosage: 500 MILLIGRAM, 5X A WEEK
     Route: 065
     Dates: start: 20160921, end: 20161020
  4. NITROGLYCERIN. [Concomitant]
     Active Substance: NITROGLYCERIN
     Indication: ANGINA PECTORIS
     Dosage: 0.4 MILLIGRAM, PRN
     Route: 065
     Dates: start: 20140218
  5. PLAVIX [Concomitant]
     Active Substance: CLOPIDOGREL BISULFATE
     Indication: CORONARY ARTERY DISEASE
     Dosage: 75 MILLIGRAM, QD
     Route: 065
     Dates: start: 20100104
  6. AMITRIPTYLINE [Concomitant]
     Active Substance: AMITRIPTYLINE
     Indication: ANXIETY
     Dosage: 5 MILLIGRAM, QD
     Route: 065
     Dates: start: 20070509
  7. ISOSORBIDE MONONITRATE. [Concomitant]
     Active Substance: ISOSORBIDE MONONITRATE
     Indication: ANGINA PECTORIS
     Dosage: 60 MILLIGRAM, QD
     Route: 065
     Dates: start: 20010527
  8. LOSARTAN. [Concomitant]
     Active Substance: LOSARTAN
     Dosage: 75 MILLIGRAM, QD
     Route: 065
     Dates: start: 20160316, end: 20161207
  9. LOSARTAN. [Concomitant]
     Active Substance: LOSARTAN
     Dosage: 25 MILLIGRAM, QD
     Route: 065
     Dates: start: 20180517
  10. PREDNISONE. [Concomitant]
     Active Substance: PREDNISONE
     Indication: ANAEMIA
     Dosage: 5 MILLIGRAM, QD
     Route: 065
     Dates: start: 20190520, end: 20190717
  11. TRIAZOLAM. [Concomitant]
     Active Substance: TRIAZOLAM
     Indication: ANXIETY
     Dosage: 0.063 MILLIGRAM, QD
     Route: 065
     Dates: start: 20020129
  12. LOSARTAN. [Concomitant]
     Active Substance: LOSARTAN
     Dosage: 25 MILLIGRAM, BID
     Route: 065
     Dates: start: 20161208, end: 20180516
  13. ALLOPURINOL. [Concomitant]
     Active Substance: ALLOPURINOL
     Indication: GOUT
     Dosage: 150 MILLIGRAM, QD
     Route: 065
     Dates: start: 20010527
  14. ASPIRIN                            /00002701/ [Concomitant]
     Active Substance: ASPIRIN
     Indication: CARDIAC DISORDER
     Dosage: 81 MILLIGRAM, QD
     Route: 065
     Dates: start: 20050128
  15. IRON SUCROSE [Concomitant]
     Active Substance: IRON SUCROSE
     Indication: ANAEMIA
     Dosage: 200 MILLIGRAM, WEEKLY
     Route: 065
     Dates: start: 20170127
  16. JAKAFI [Suspect]
     Active Substance: RUXOLITINIB
     Indication: POLYCYTHAEMIA VERA
     Dosage: 15 MILLIGRAM, BID
     Route: 065
     Dates: start: 20170829
  17. LOSARTAN. [Concomitant]
     Active Substance: LOSARTAN
     Indication: HYPERTENSION
     Dosage: 25 MILLIGRAM, QD
     Route: 065
     Dates: start: 20100722, end: 20160203
  18. LOSARTAN. [Concomitant]
     Active Substance: LOSARTAN
     Dosage: 50 MILLIGRAM, QD
     Route: 065
     Dates: start: 20160204, end: 20160305
  19. ACETAMINOPHEN. [Concomitant]
     Active Substance: ACETAMINOPHEN
     Indication: ARTHRALGIA
     Dosage: 1000 MILLIGRAM, QD
     Route: 065
     Dates: start: 20120718
  20. HYDROXYUREA. [Concomitant]
     Active Substance: HYDROXYUREA
     Indication: POLYCYTHAEMIA VERA
     Dosage: 1000 MILLIGRAM, 3X/WEEK
     Route: 065
     Dates: start: 20010618, end: 20160919
  21. HYDROXYUREA. [Concomitant]
     Active Substance: HYDROXYUREA
     Dosage: 1000 MILLIGRAM, 2X/WEEK
     Route: 065
     Dates: start: 20160921, end: 20161020
  22. RABEPRAZOLE [Concomitant]
     Active Substance: RABEPRAZOLE
     Indication: GASTROOESOPHAGEAL REFLUX DISEASE
     Dosage: 20 MILLIGRAM, QD
     Route: 065
     Dates: start: 20160210

REACTIONS (4)
  - Lymphocyte count decreased [Not Recovered/Not Resolved]
  - Cystitis [Recovered/Resolved]
  - Tooth fracture [Recovered/Resolved]
  - Bursitis [Recovered/Resolved]

NARRATIVE: CASE EVENT DATE: 20171209
